FAERS Safety Report 24584188 (Version 1)
Quarter: 2024Q4

REPORT INFORMATION
  Report Type: Spontaneous
  Country: US (occurrence: US)
  Receive Date: 20241106
  Receipt Date: 20241106
  Transmission Date: 20250114
  Serious: No
  Sender: AMGEN
  Company Number: US-AMGEN-USASP2024214905

PATIENT
  Age: 48 Year
  Sex: Female

DRUGS (2)
  1. PREDNISONE [Suspect]
     Active Substance: PREDNISONE
     Indication: Neurosyphilis
     Dosage: 40 MILLIGRAM, QD
     Route: 048
  2. PENICILLIN [Concomitant]
     Active Substance: PENICILLIN
     Indication: Neurosyphilis
     Dosage: UNK

REACTIONS (2)
  - Therapeutic product effect incomplete [Unknown]
  - Off label use [Unknown]
